FAERS Safety Report 25006393 (Version 2)
Quarter: 2025Q1

REPORT INFORMATION
  Report Type: Spontaneous
  Country: JP (occurrence: JP)
  Receive Date: 20250224
  Receipt Date: 20250310
  Transmission Date: 20250409
  Serious: Yes (Other)
  Sender: NOVO NORDISK
  Company Number: JP-NOVOPROD-1367485

PATIENT
  Age: 22 Year
  Sex: Male
  Weight: 79.1 kg

DRUGS (4)
  1. SOGROYA [Suspect]
     Active Substance: SOMAPACITAN-BECO
     Indication: Hypopituitarism
     Dosage: 2 MG, QW
     Route: 058
     Dates: start: 202302, end: 20250130
  2. GONATROPIN [Concomitant]
     Indication: Hypopituitarism
  3. LEVOTHYROXINE SODIUM [Concomitant]
     Active Substance: LEVOTHYROXINE SODIUM
     Indication: Hypopituitarism
     Dosage: 25 ?G, QD
     Route: 048
  4. LEVOTHYROXINE SODIUM [Concomitant]
     Active Substance: LEVOTHYROXINE SODIUM
     Dosage: 100 ?G, QD
     Route: 048

REACTIONS (1)
  - Intracranial germ cell tumour [Unknown]

NARRATIVE: CASE EVENT DATE: 20241226
